FAERS Safety Report 9492729 (Version 8)
Quarter: 2014Q1

REPORT INFORMATION
  Report Type: Report from Study
  Country: FR (occurrence: FR)
  Receive Date: 20130830
  Receipt Date: 20140214
  Transmission Date: 20141002
  Serious: Yes (Hospitalization, Disabling)
  Sender: FDA-Public Use
  Company Number: FR-ROCHE-1265801

PATIENT
  Age: 82 Year
  Sex: Female
  Weight: 61.6 kg

DRUGS (26)
  1. VISMODEGIB [Suspect]
     Indication: BASAL CELL CARCINOMA
     Dosage: THE LAST DOSE PRIOR TO THE EVENT WAS ON 18/AUG/2013.
     Route: 048
     Dates: start: 20121114, end: 20130820
  2. ALDACTONE (FRANCE) [Suspect]
     Indication: HYPERTENSION
     Route: 065
     Dates: end: 20130819
  3. LASILIX [Suspect]
     Indication: HYPERTENSION
     Route: 065
     Dates: end: 20130819
  4. CYAMEMAZINE [Concomitant]
     Indication: BIPOLAR I DISORDER
  5. IXEL [Concomitant]
     Indication: BIPOLAR I DISORDER
     Route: 065
  6. LYSANXIA [Concomitant]
     Indication: BIPOLAR I DISORDER
     Route: 065
  7. SERESTA [Concomitant]
     Indication: BIPOLAR I DISORDER
     Route: 065
     Dates: end: 20130818
  8. SERESTA [Concomitant]
     Route: 065
     Dates: start: 20130819
  9. TEGRETOL LP [Concomitant]
     Indication: BIPOLAR I DISORDER
     Route: 065
  10. SPAGULAX [Concomitant]
     Indication: CONSTIPATION
     Route: 065
  11. SPASFON (FRANCE) [Concomitant]
     Route: 065
     Dates: start: 20121211, end: 20130307
  12. BACTRIM FORTE [Concomitant]
     Indication: URINARY TRACT INFECTION
     Route: 065
     Dates: start: 20130205, end: 20130210
  13. DIFFU K [Concomitant]
     Indication: HYPOKALAEMIA
     Route: 065
     Dates: start: 20130307, end: 20130312
  14. DIFFU K [Concomitant]
     Indication: RENAL FAILURE
     Route: 065
     Dates: start: 20130503, end: 20130529
  15. DIFFU K [Concomitant]
     Route: 065
     Dates: start: 20130725
  16. DIFFU K [Concomitant]
     Route: 065
     Dates: start: 20130819
  17. OFLOCET (FRANCE) [Concomitant]
     Indication: URINARY TRACT INFECTION
     Route: 065
     Dates: start: 20130503, end: 20130508
  18. LOXEN LP [Concomitant]
     Indication: HYPERTENSION
     Route: 065
     Dates: start: 20130530
  19. MYCOSTER CREME [Concomitant]
     Indication: INTERTRIGO
     Dosage: TOTAL DAILY DOSE: 2 APPLICATIONS.
     Route: 065
     Dates: start: 20130530, end: 20130627
  20. TARDYFERON (FRANCE) [Concomitant]
     Indication: ANAEMIA
     Route: 065
     Dates: start: 20130627, end: 20130723
  21. TARDYFERON (FRANCE) [Concomitant]
     Indication: RENAL FAILURE
     Route: 065
     Dates: start: 20130820, end: 20130917
  22. POTASSIUM CHLORIDE [Concomitant]
     Indication: HYPOKALAEMIA
     Route: 065
     Dates: start: 20130724, end: 20130724
  23. GLUCOSE 5% [Concomitant]
     Indication: HYPOKALAEMIA
     Route: 065
     Dates: start: 20130724, end: 20130724
  24. MILNACIPRAN [Concomitant]
     Route: 065
  25. CALCIPARINE [Concomitant]
     Route: 065
     Dates: start: 20130819, end: 20130821
  26. TERCIAN [Concomitant]
     Indication: BIPOLAR I DISORDER
     Route: 065

REACTIONS (1)
  - Renal failure [Recovered/Resolved]
